FAERS Safety Report 7458757-1 (Version None)
Quarter: 2011Q2

REPORT INFORMATION
  Report Type: 
  Country: None (occurrence: None)
  Receive Date: 20110504
  Receipt Date: 20110502
  Transmission Date: 20111010
  Serious: Yes (Other)
  Sender: FDA-Public Use
  Company Number: US-PFIZER INC-2010150647

PATIENT
  Age: 58 Year
  Sex: Male

DRUGS (2)
  1. DOXYCYCLINE HYCLATE [Suspect]
     Dosage: 100 MG, 1X/DAY
  2. DOXYCYCLINE HYCLATE [Suspect]
     Indication: INFECTION
     Dosage: 200 MG, 1X/DAY

REACTIONS (4)
  - LOSS OF CONSCIOUSNESS [None]
  - DIZZINESS [None]
  - AMNESIA [None]
  - HEAD INJURY [None]
